FAERS Safety Report 24461049 (Version 1)
Quarter: 2024Q4

REPORT INFORMATION
  Report Type: Spontaneous
  Country: CH (occurrence: CH)
  Receive Date: 20241018
  Receipt Date: 20241018
  Transmission Date: 20250114
  Serious: No
  Sender: ROCHE
  Company Number: CH-ROCHE-3538709

PATIENT

DRUGS (4)
  1. MABTHERA [Suspect]
     Active Substance: RITUXIMAB
     Indication: Encephalitis
     Route: 065
  2. MABTHERA [Suspect]
     Active Substance: RITUXIMAB
     Indication: Myelitis
  3. MABTHERA [Suspect]
     Active Substance: RITUXIMAB
     Indication: Encephalomyelitis
  4. MABTHERA [Suspect]
     Active Substance: RITUXIMAB
     Indication: Neuromyelitis optica spectrum disorder

REACTIONS (2)
  - Off label use [Unknown]
  - No adverse event [Unknown]
